FAERS Safety Report 7288309-8 (Version None)
Quarter: 2011Q1

REPORT INFORMATION
  Report Type: 
  Country: None (occurrence: None)
  Receive Date: 20110208
  Receipt Date: 20110208
  Transmission Date: 20110831
  Serious: Yes (Hospitalization)
  Sender: FDA-Public Use
  Company Number: None

PATIENT
  Age: 72 Year
  Sex: Female
  Weight: 102.7397 kg

DRUGS (1)
  1. WARFARIN SODIUM [Suspect]

REACTIONS (5)
  - RECTAL HAEMORRHAGE [None]
  - FATIGUE [None]
  - HAEMORRHOIDS [None]
  - HAEMOGLOBIN DECREASED [None]
  - ASTHENIA [None]
